FAERS Safety Report 11811697 (Version 1)
Quarter: 2015Q4

REPORT INFORMATION
  Report Type: Spontaneous
  Country: US (occurrence: US)
  Receive Date: 20151208
  Receipt Date: 20151208
  Transmission Date: 20160305
  Serious: Yes (Death)
  Sender: FDA-Public Use
  Company Number: US-JNJFOC-20151203280

PATIENT
  Age: 59 Year
  Sex: Female

DRUGS (4)
  1. TRAMADOL HYDROCHLORIDE. [Suspect]
     Active Substance: TRAMADOL HYDROCHLORIDE
     Indication: SUICIDE ATTEMPT
     Route: 048
  2. MORPHINE [Suspect]
     Active Substance: MORPHINE
     Indication: SUICIDE ATTEMPT
     Route: 048
  3. AMANTADINE [Suspect]
     Active Substance: AMANTADINE
     Indication: SUICIDE ATTEMPT
     Route: 048
  4. ETHANOL [Suspect]
     Active Substance: ALCOHOL
     Indication: SUICIDE ATTEMPT
     Route: 048

REACTIONS (1)
  - Toxicity to various agents [Fatal]
